FAERS Safety Report 15807179 (Version 1)
Quarter: 2018Q4

REPORT INFORMATION
  Report Type: Spontaneous
  Country: US (occurrence: US)
  Receive Date: 20181214
  Receipt Date: 20181214
  Transmission Date: 20190205
  Serious: No
  Sender: FDA-Public Use
  Company Number: None

PATIENT
  Age: 32 Year
  Sex: Male
  Weight: 77.11 kg

DRUGS (1)
  1. KOICBD PRODUCTS [Suspect]
     Active Substance: CANNABIDIOL\HERBALS
     Indication: NUTRITIONAL SUPPLEMENTATION

REACTIONS (1)
  - Product label issue [None]
